FAERS Safety Report 21879057 (Version 2)
Quarter: 2023Q1

REPORT INFORMATION
  Report Type: Spontaneous
  Country: US (occurrence: US)
  Receive Date: 20230118
  Receipt Date: 20230131
  Transmission Date: 20230418
  Serious: No
  Sender: FDA-Public Use
  Company Number: US-PFIZER INC-202300018070

PATIENT
  Age: 66 Year
  Sex: Male
  Weight: 81.633 kg

DRUGS (3)
  1. PAXLOVID [Suspect]
     Active Substance: NIRMATRELVIR\RITONAVIR
     Indication: COVID-19 treatment
     Dosage: 300-100MG , 2X/DAY
     Dates: start: 20221222, end: 20221226
  2. MUCINEX DM [Concomitant]
     Active Substance: DEXTROMETHORPHAN HYDROBROMIDE\GUAIFENESIN
     Dosage: OFF/ON FOR COUPLE WEEKS
     Dates: start: 20221220, end: 20230110
  3. TYLENOL [Concomitant]
     Active Substance: ACETAMINOPHEN
     Dosage: OFF/ON FOR COUPLE WEEKS
     Dates: start: 20221220, end: 20230110

REACTIONS (2)
  - COVID-19 [Recovered/Resolved]
  - Dysgeusia [Unknown]

NARRATIVE: CASE EVENT DATE: 20221201
